FAERS Safety Report 12773661 (Version 1)
Quarter: 2016Q3

REPORT INFORMATION
  Report Type: Spontaneous
  Country: GB (occurrence: GB)
  Receive Date: 20160923
  Receipt Date: 20160923
  Transmission Date: 20161109
  Serious: Yes (Hospitalization, Disabling, Other)
  Sender: FDA-Public Use
  Company Number: GB-BAXTER-2016BAX047627

PATIENT
  Age: 55 Year
  Sex: Male

DRUGS (15)
  1. LIDOCAINE. [Suspect]
     Active Substance: LIDOCAINE
     Indication: SEDATION
     Route: 051
     Dates: start: 20140904, end: 20140904
  2. MIDAZOLAM [Suspect]
     Active Substance: MIDAZOLAM\MIDAZOLAM HYDROCHLORIDE
     Indication: SEDATION
     Route: 051
     Dates: start: 20140904, end: 20140904
  3. GABAPENTIN. [Concomitant]
     Active Substance: GABAPENTIN
     Indication: PRODUCT USED FOR UNKNOWN INDICATION
     Route: 065
  4. TRAMADOL. [Concomitant]
     Active Substance: TRAMADOL
     Indication: PRODUCT USED FOR UNKNOWN INDICATION
     Dosage: ONE OR TWO 4 TIMES DAILY.
     Route: 065
  5. CHIROCAINE [Suspect]
     Active Substance: LEVOBUPIVACAINE HYDROCHLORIDE
     Indication: SEDATION
     Route: 051
     Dates: start: 20140904, end: 20140904
  6. EPILIM [Concomitant]
     Active Substance: VALPROATE SODIUM
     Indication: PRODUCT USED FOR UNKNOWN INDICATION
     Route: 065
  7. GABAPENTIN. [Concomitant]
     Active Substance: GABAPENTIN
     Dosage: PLUS EXTRA DOSE AT NIGHT
     Route: 065
  8. RANITIDINE. [Concomitant]
     Active Substance: RANITIDINE
     Indication: PRODUCT USED FOR UNKNOWN INDICATION
     Dosage: 1-2 ONCE DAILY
     Route: 065
  9. SODIUM CHLORIDE 0.9% INTRAVENOUS INFUSION BP [Suspect]
     Active Substance: SODIUM CHLORIDE
     Indication: SEDATION
     Route: 051
     Dates: start: 20140904, end: 20140904
  10. SODIUM CHLORIDE 0.9% INTRAVENOUS INFUSION BP [Suspect]
     Active Substance: SODIUM CHLORIDE
     Indication: OFF LABEL USE
  11. CLONAZEPAM. [Concomitant]
     Active Substance: CLONAZEPAM
     Indication: PRODUCT USED FOR UNKNOWN INDICATION
     Route: 065
  12. MORPHINE SULFATE. [Concomitant]
     Active Substance: MORPHINE SULFATE
     Indication: BREAKTHROUGH PAIN
     Dosage: 10MG/5ML
     Route: 065
  13. TRIAMCINOLONE [Suspect]
     Active Substance: TRIAMCINOLONE
     Indication: SEDATION
     Route: 051
     Dates: start: 20140904, end: 20140904
  14. FENTANYL. [Suspect]
     Active Substance: FENTANYL
     Indication: SEDATION
     Route: 051
     Dates: start: 20140904, end: 20140904
  15. GLUCOSAMINE SULPHATE [Concomitant]
     Active Substance: GLUCOSAMINE
     Indication: PRODUCT USED FOR UNKNOWN INDICATION
     Route: 065

REACTIONS (29)
  - Unresponsive to stimuli [Unknown]
  - Mydriasis [Unknown]
  - Rash erythematous [Unknown]
  - Neck pain [Unknown]
  - Retrograde amnesia [Not Recovered/Not Resolved]
  - Erythema [Unknown]
  - Depressed level of consciousness [Unknown]
  - Eye pain [Unknown]
  - Muscle spasms [Unknown]
  - Hypoaesthesia oral [Unknown]
  - Decreased appetite [Unknown]
  - Nausea [Not Recovered/Not Resolved]
  - Ageusia [Unknown]
  - Nightmare [Unknown]
  - Hallucination [Unknown]
  - Muscle twitching [Unknown]
  - Facial paralysis [Unknown]
  - Speech disorder [Unknown]
  - Dissociative amnesia [Not Recovered/Not Resolved]
  - Skin warm [Unknown]
  - Headache [Unknown]
  - Musculoskeletal stiffness [Unknown]
  - Dysgeusia [Not Recovered/Not Resolved]
  - Loss of consciousness [Unknown]
  - Photophobia [Not Recovered/Not Resolved]
  - Ocular hyperaemia [Unknown]
  - Dysgraphia [Unknown]
  - Hemiparesis [Unknown]
  - Metamorphopsia [Unknown]

NARRATIVE: CASE EVENT DATE: 20140905
